FAERS Safety Report 23734366 (Version 1)
Quarter: 2024Q2

REPORT INFORMATION
  Report Type: Spontaneous
  Country: CN (occurrence: CN)
  Receive Date: 20240412
  Receipt Date: 20240412
  Transmission Date: 20240716
  Serious: Yes (Other)
  Sender: FDA-Public Use
  Company Number: CN-SHANGHAI JUNSHI BIOSCIENCES CO., LTD.-CN2024009685

PATIENT

DRUGS (3)
  1. TORIPALIMAB [Suspect]
     Active Substance: TORIPALIMAB
     Indication: Bladder cancer stage IV
     Dosage: 240 MG, Q3W
     Route: 041
     Dates: start: 20240315, end: 20240315
  2. PACLITAXEL [Suspect]
     Active Substance: PACLITAXEL
     Indication: Bladder cancer stage IV
     Dosage: 200 MG (D1), Q3W
     Route: 041
     Dates: start: 20240315, end: 20240315
  3. BEVACIZUMAB [Suspect]
     Active Substance: BEVACIZUMAB
     Indication: Bladder cancer stage IV
     Dosage: 400 MG, Q3W
     Route: 041
     Dates: start: 20240315, end: 20240315

REACTIONS (3)
  - White blood cell count decreased [Recovering/Resolving]
  - Haemoglobin decreased [Recovering/Resolving]
  - Off label use [Unknown]

NARRATIVE: CASE EVENT DATE: 20240315
